FAERS Safety Report 19217328 (Version 1)
Quarter: 2021Q2

REPORT INFORMATION
  Report Type: Spontaneous
  Country: ES (occurrence: ES)
  Receive Date: 20210505
  Receipt Date: 20210505
  Transmission Date: 20210717
  Serious: Yes (Hospitalization)
  Sender: FDA-Public Use
  Company Number: ES-PFIZER INC-2021441429

PATIENT
  Age: 37 Year
  Sex: Female
  Weight: 60 kg

DRUGS (2)
  1. ETHINYLESTRADIOL/LEVONORGESTREL [Suspect]
     Active Substance: ETHINYL ESTRADIOL\LEVONORGESTREL
     Indication: POLYCYSTIC OVARIES
     Dosage: 1 DF, 1X/DAY
     Route: 048
     Dates: start: 20200206, end: 20210226
  2. COMIRNATY [Suspect]
     Active Substance: TOZINAMERAN
     Indication: COVID-19 IMMUNISATION
     Dosage: 0.3 ML, SINGLE
     Route: 030
     Dates: start: 20210209, end: 20210209

REACTIONS (1)
  - Acute myocardial infarction [Recovered/Resolved]

NARRATIVE: CASE EVENT DATE: 20210226
